FAERS Safety Report 24629519 (Version 1)
Quarter: 2024Q4

REPORT INFORMATION
  Report Type: Spontaneous
  Country: US (occurrence: US)
  Receive Date: 20241118
  Receipt Date: 20241118
  Transmission Date: 20250114
  Serious: No
  Sender: PADAGIS
  Company Number: US-PADAGIS-2024PAD01797

PATIENT

DRUGS (1)
  1. ESTRADIOL VAGINAL [Suspect]
     Active Substance: ESTRADIOL
     Indication: Cystitis noninfective
     Dosage: UNK
     Route: 065
     Dates: start: 20241111

REACTIONS (4)
  - Migraine [None]
  - Headache [None]
  - Product prescribing issue [Unknown]
  - Product use in unapproved indication [Unknown]

NARRATIVE: CASE EVENT DATE: 20241111
